FAERS Safety Report 6667183-4 (Version None)
Quarter: 2010Q2

REPORT INFORMATION
  Report Type: 
  Country: None (occurrence: None)
  Receive Date: 20100401
  Receipt Date: 20100401
  Transmission Date: 20101027
  Serious: Yes (Life-Threatening)
  Sender: FDA-Public Use
  Company Number: None

PATIENT
  Age: 44 Year
  Sex: Female
  Weight: 57 kg

DRUGS (2)
  1. BEVACIZUMAB NI GENENTECH [Suspect]
     Indication: CERVIX CANCER METASTATIC
     Dosage: 850MG EVERY 21 DAYS IV
     Route: 042
     Dates: start: 20100223, end: 20100223
  2. BEVACIZUMAB NI GENENTECH [Suspect]
     Indication: CERVIX CANCER METASTATIC
     Dosage: 850 MG EVERY 21 DAYS IV
     Route: 042
     Dates: start: 20100316, end: 20100316

REACTIONS (1)
  - INTESTINAL PERFORATION [None]
